FAERS Safety Report 13076172 (Version 1)
Quarter: 2016Q4

REPORT INFORMATION
  Report Type: Spontaneous
  Country: US (occurrence: US)
  Receive Date: 20161230
  Receipt Date: 20161230
  Transmission Date: 20170207
  Serious: Yes (Hospitalization)
  Sender: FDA-Public Use
  Company Number: US-SUPERNUS PHARMACEUTICALS, INC.-2016SUP00136

PATIENT
  Age: 69 Year
  Sex: Male
  Weight: 86.17 kg

DRUGS (4)
  1. DILTIAZEM ER [Concomitant]
     Active Substance: DILTIAZEM
     Dosage: 300 MG, 1X/DAY
  2. OXTELLAR XR [Suspect]
     Active Substance: OXCARBAZEPINE
     Dosage: 900 MG, 1X/DAY
     Route: 048
     Dates: start: 20160721
  3. LAMICTAL [Concomitant]
     Active Substance: LAMOTRIGINE
     Dosage: 500 MG, 1X/DAY
  4. OXTELLAR XR [Suspect]
     Active Substance: OXCARBAZEPINE
     Dosage: 1200 MG, 1X/DAY
     Route: 048
     Dates: end: 20160721

REACTIONS (5)
  - Balance disorder [Not Recovered/Not Resolved]
  - Dizziness [Not Recovered/Not Resolved]
  - Gait disturbance [Unknown]
  - Nausea [Recovered/Resolved]
  - Vomiting [Recovered/Resolved]

NARRATIVE: CASE EVENT DATE: 201601
